FAERS Safety Report 11185170 (Version 1)
Quarter: 2015Q2

REPORT INFORMATION
  Report Type: Spontaneous
  Country: JP (occurrence: JP)
  Receive Date: 20150612
  Receipt Date: 20150612
  Transmission Date: 20150821
  Serious: Yes (Hospitalization, Other)
  Sender: FDA-Public Use
  Company Number: JP-BAYER-2015-307574

PATIENT
  Age: 33 Year
  Sex: Female

DRUGS (3)
  1. HEPARIN [Concomitant]
     Active Substance: HEPARIN SODIUM
     Indication: ANTIPHOSPHOLIPID SYNDROME
     Dosage: 10000 DF,DAILY
  2. ACETYLSALICYLIC ACID({=100 MG) [Suspect]
     Active Substance: ASPIRIN
     Dosage: UNK
     Route: 048
  3. PREDNISOLONE. [Concomitant]
     Active Substance: PREDNISOLONE
     Dosage: 9 MG, DAILY DOSE

REACTIONS (8)
  - Maternal exposure during pregnancy [None]
  - Stillbirth [None]
  - Systemic lupus erythematosus [None]
  - Pleural effusion [None]
  - Protein urine present [None]
  - Erythema [None]
  - Blood pressure increased [None]
  - Platelet count decreased [None]
